FAERS Safety Report 6653187-4 (Version None)
Quarter: 2010Q1

REPORT INFORMATION
  Report Type: 
  Country: None (occurrence: None)
  Receive Date: 20100326
  Receipt Date: 20100316
  Transmission Date: 20100710
  Serious: Yes (Hospitalization)
  Sender: FDA-Public Use
  Company Number: GB-BRISTOL-MYERS SQUIBB COMPANY-15024136

PATIENT
  Age: 42 Year
  Sex: Female

DRUGS (5)
  1. DASATINIB [Suspect]
     Indication: CHRONIC MYELOID LEUKAEMIA TRANSFORMATION
     Dates: start: 20100111, end: 20100101
  2. FLUDARABINE PHOSPHATE [Suspect]
     Indication: CHRONIC MYELOID LEUKAEMIA TRANSFORMATION
  3. CYTARABINE [Suspect]
     Indication: CHRONIC MYELOID LEUKAEMIA TRANSFORMATION
  4. NEUPOGEN [Suspect]
     Indication: CHRONIC MYELOID LEUKAEMIA TRANSFORMATION
  5. IDARUBICIN HCL [Suspect]
     Indication: CHRONIC MYELOID LEUKAEMIA TRANSFORMATION

REACTIONS (3)
  - FEBRILE NEUTROPENIA [None]
  - PULMONARY MASS [None]
  - RASH [None]
